FAERS Safety Report 12139311 (Version 1)
Quarter: 2016Q1

REPORT INFORMATION
  Report Type: Spontaneous
  Country: US (occurrence: US)
  Receive Date: 20160303
  Receipt Date: 20160303
  Transmission Date: 20160526
  Serious: No
  Sender: FDA-Public Use
  Company Number: US-009507513-1602USA010212

PATIENT
  Age: 68 Year
  Sex: Male

DRUGS (8)
  1. VESICARE [Concomitant]
     Active Substance: SOLIFENACIN SUCCINATE
  2. NORVASC [Concomitant]
     Active Substance: AMLODIPINE BESYLATE
  3. CIALIS [Concomitant]
     Active Substance: TADALAFIL
  4. MOBIC [Concomitant]
     Active Substance: MELOXICAM
  5. BELSOMRA [Suspect]
     Active Substance: SUVOREXANT
     Indication: BACK PAIN
     Dosage: 10 MG, 30 MINUTES BEFORE BEDTIME
     Route: 048
     Dates: start: 20160218
  6. BUSPIRONE HYDROCHLORIDE. [Concomitant]
     Active Substance: BUSPIRONE HYDROCHLORIDE
  7. NORCO [Concomitant]
     Active Substance: ACETAMINOPHEN\HYDROCODONE BITARTRATE
  8. NEURONTIN [Concomitant]
     Active Substance: GABAPENTIN

REACTIONS (5)
  - Dry mouth [Unknown]
  - Abnormal dreams [Unknown]
  - Product use issue [Unknown]
  - Hyperacusis [Unknown]
  - Photophobia [Unknown]

NARRATIVE: CASE EVENT DATE: 20160218
